FAERS Safety Report 21006879 (Version 1)
Quarter: 2022Q2

REPORT INFORMATION
  Report Type: Report from Study
  Country: US (occurrence: US)
  Receive Date: 20220625
  Receipt Date: 20220625
  Transmission Date: 20220721
  Serious: Yes (Other)
  Sender: FDA-Public Use
  Company Number: US-BRISTOL-MYERS SQUIBB COMPANY-2022-051489

PATIENT
  Age: 83 Year
  Sex: Male
  Weight: 87.543 kg

DRUGS (1)
  1. REVLIMID [Suspect]
     Active Substance: LENALIDOMIDE
     Indication: Plasma cell myeloma
     Dosage: FOR 21DAYS 7DAYS OFF
     Route: 048
     Dates: start: 20200409

REACTIONS (1)
  - Influenza like illness [Unknown]
